FAERS Safety Report 6011404-8 (Version None)
Quarter: 2008Q4

REPORT INFORMATION
  Report Type: 
  Country: None (occurrence: None)
  Receive Date: 20081218
  Receipt Date: 19990512
  Transmission Date: 20090506
  Serious: Yes (Death, Other)
  Sender: FDA-Public Use
  Company Number: CH-ROCHE-202835

PATIENT
  Sex: Male

DRUGS (6)
  1. TOLCAPONE [Suspect]
     Indication: PARKINSON'S DISEASE
     Route: 065
     Dates: start: 19970929, end: 19990203
  2. TOLCAPONE [Suspect]
     Route: 065
     Dates: start: 19990204, end: 19990320
  3. TOLCAPONE [Suspect]
     Route: 065
     Dates: start: 19990326, end: 19990512
  4. MADOPAR DR [Concomitant]
     Dates: start: 19990204, end: 19990512
  5. MADOPAR HBS [Concomitant]
     Dates: start: 19990204, end: 19990512
  6. MADOPAR LIQ [Concomitant]
     Dates: start: 19990204, end: 19990512

REACTIONS (4)
  - ALANINE AMINOTRANSFERASE INCREASED [None]
  - CEREBRAL HAEMORRHAGE [None]
  - DEATH [None]
  - PNEUMONIA [None]
